FAERS Safety Report 24335426 (Version 1)
Quarter: 2024Q3

REPORT INFORMATION
  Report Type: Report from Study
  Country: US (occurrence: US)
  Receive Date: 20240919
  Receipt Date: 20240919
  Transmission Date: 20241017
  Serious: Yes (Death)
  Sender: ABBVIE
  Company Number: US-ABBVIE-5928121

PATIENT
  Sex: Male

DRUGS (1)
  1. VENCLEXTA [Suspect]
     Active Substance: VENETOCLAX
     Indication: Mantle cell lymphoma
     Dosage: TAKE 1 TABLET BY MOUTH DAILY (TAKE WITH 10MG TABLET FOR?TOTAL DOSE OF 60MG PER DAY)
     Route: 048

REACTIONS (1)
  - Death [Fatal]
